FAERS Safety Report 7292315-7 (Version None)
Quarter: 2011Q1

REPORT INFORMATION
  Report Type: 
  Country: None (occurrence: None)
  Receive Date: 20110202
  Receipt Date: 20110125
  Transmission Date: 20110831
  Serious: Yes (Other)
  Sender: FDA-Public Use
  Company Number: 2011SP003649

PATIENT
  Sex: Female

DRUGS (1)
  1. IMPLANON [Suspect]
     Indication: CONTRACEPTION
     Dates: start: 20100201, end: 20100101

REACTIONS (6)
  - BREAST DISORDER [None]
  - FEELING ABNORMAL [None]
  - MOOD ALTERED [None]
  - DRUG EXPOSURE DURING PREGNANCY [None]
  - PREGNANCY WITH IMPLANT CONTRACEPTIVE [None]
  - AGGRESSION [None]
